FAERS Safety Report 6567841-6 (Version None)
Quarter: 2010Q1

REPORT INFORMATION
  Report Type: 
  Country: None (occurrence: None)
  Receive Date: 20100203
  Receipt Date: 20100126
  Transmission Date: 20100710
  Serious: Yes (Other)
  Sender: FDA-Public Use
  Company Number: US-JNJFOC-20100111640

PATIENT
  Sex: Female

DRUGS (2)
  1. EXTRA STRENGTH TYLENOL [Suspect]
     Indication: TOOTH EXTRACTION
  2. EXTRA STRENGTH TYLENOL [Suspect]
     Indication: DRUG USE FOR UNKNOWN INDICATION

REACTIONS (7)
  - ABDOMINAL PAIN UPPER [None]
  - DEHYDRATION [None]
  - DIARRHOEA [None]
  - HUNGER [None]
  - NAUSEA [None]
  - PRODUCT ODOUR ABNORMAL [None]
  - PRODUCT QUALITY ISSUE [None]
